FAERS Safety Report 4607107-4 (Version None)
Quarter: 2005Q1

REPORT INFORMATION
  Report Type: 
  Country: None (occurrence: None)
  Receive Date: 20050310
  Receipt Date: 20050223
  Transmission Date: 20050727
  Serious: Yes (Other)
  Sender: FDA-Public Use
  Company Number: 200510357BWH

PATIENT
  Sex: Male

DRUGS (2)
  1. CIPRO XR [Suspect]
     Indication: BIOPSY PROSTATE
     Dosage: ORAL
     Route: 048
  2. CIPRO XR [Suspect]
     Indication: POSTOPERATIVE CARE
     Dosage: ORAL
     Route: 048

REACTIONS (3)
  - CHILLS [None]
  - PYREXIA [None]
  - SEPSIS [None]
